FAERS Safety Report 7084125-0 (Version None)
Quarter: 2010Q4

REPORT INFORMATION
  Report Type: 
  Country: None (occurrence: None)
  Receive Date: 20101104
  Receipt Date: 20101026
  Transmission Date: 20110411
  Serious: Yes (Hospitalization)
  Sender: FDA-Public Use
  Company Number: JP-ABBOTT-10P-087-0681758-00

PATIENT
  Sex: Male
  Weight: 65 kg

DRUGS (8)
  1. NORVIR [Suspect]
     Indication: HIV INFECTION
     Route: 048
     Dates: start: 20040712
  2. LAMIVUDINE [Suspect]
     Indication: HIV INFECTION
     Route: 048
     Dates: start: 20040712, end: 20090707
  3. ATAZANAVIR SULFATE [Suspect]
     Indication: HIV INFECTION
     Route: 048
     Dates: start: 20040712, end: 20090707
  4. TENOFOVIR DISOPROXIL FUMARATE [Suspect]
     Indication: HIV INFECTION
     Route: 048
     Dates: start: 20040712, end: 20090707
  5. FOSAMPRENAVIR CALCIUM HYDRATE [Concomitant]
     Indication: HIV INFECTION
     Route: 048
     Dates: start: 20090708
  6. TRUVADA [Concomitant]
     Indication: HIV INFECTION
     Route: 048
     Dates: start: 20090708
  7. RURIOCTOCOG ALFA (GENETICAL RECOMBINATION) [Concomitant]
     Indication: HAEMOPHILIA
     Route: 050
     Dates: start: 20070401, end: 20070720
  8. ADVATE [Concomitant]
     Indication: HAEMOPHILIA
     Dates: start: 20070721

REACTIONS (4)
  - ABDOMINAL PAIN [None]
  - GASTRIC ULCER [None]
  - MELAENA [None]
  - REFLUX OESOPHAGITIS [None]
